FAERS Safety Report 5767543-X (Version None)
Quarter: 2008Q2

REPORT INFORMATION
  Report Type: 
  Country: None (occurrence: None)
  Receive Date: 20080612
  Receipt Date: 20080602
  Transmission Date: 20081010
  Serious: Yes (Other)
  Sender: FDA-Public Use
  Company Number: US-JNJFOC-20080600837

PATIENT
  Sex: Male
  Weight: 76.2 kg

DRUGS (5)
  1. INVEGA [Suspect]
     Route: 048
  2. INVEGA [Suspect]
     Route: 048
  3. INVEGA [Suspect]
     Indication: BIPOLAR DISORDER
     Route: 048
  4. SEROQUEL [Concomitant]
     Indication: PANIC ATTACK
     Route: 048
  5. ESCITALOPRAM OXALATE [Concomitant]
     Indication: BIPOLAR DISORDER
     Route: 048

REACTIONS (6)
  - DIZZINESS [None]
  - HEADACHE [None]
  - PHOTOPHOBIA [None]
  - VERTIGO [None]
  - VISION BLURRED [None]
  - WEIGHT INCREASED [None]
